FAERS Safety Report 7301548-2 (Version None)
Quarter: 2011Q1

REPORT INFORMATION
  Report Type: 
  Country: None (occurrence: None)
  Receive Date: 20110218
  Receipt Date: 20110209
  Transmission Date: 20110831
  Serious: Yes (Other)
  Sender: FDA-Public Use
  Company Number: CH-PFIZER INC-2011034538

PATIENT
  Age: 62 Year
  Sex: Female

DRUGS (7)
  1. IRFEN [Interacting]
     Dosage: 400 MG, AS NEEDED
     Route: 048
     Dates: start: 20110124, end: 20110124
  2. MULTAQ [Interacting]
     Indication: TACHYCARDIA PAROXYSMAL
     Dosage: 400 MG, 2X/DAY
     Route: 048
     Dates: start: 20100608
  3. IRFEN [Interacting]
     Indication: SCIATICA
     Dosage: AS NECESSARY, MAX 2 X400 MG DAILY
     Route: 048
     Dates: start: 20110117, end: 20110120
  4. PANTOZOL [Suspect]
     Indication: GASTRITIS
     Dosage: 20 MG, 1X/DAY
     Route: 048
     Dates: start: 20110117, end: 20110120
  5. DAFALGAN [Concomitant]
     Route: 048
  6. XANAX [Concomitant]
     Dosage: 0.125 MG,MAX 0,125 MG TWICE DAILY
     Route: 048
  7. PANTOZOL [Interacting]
     Dosage: 20 MG, 1X/DAY
     Route: 048
     Dates: start: 20110124, end: 20110124

REACTIONS (4)
  - DRUG INTERACTION [None]
  - PALPITATIONS [None]
  - DYSPNOEA [None]
  - TACHYCARDIA PAROXYSMAL [None]
